FAERS Safety Report 8572674-5 (Version None)
Quarter: 2012Q2

REPORT INFORMATION
  Report Type: 
  Country: None (occurrence: None)
  Receive Date: 20120423
  Receipt Date: 20100323
  Transmission Date: 20120825
  Serious: Yes (Hospitalization)
  Sender: FDA-Public Use
  Company Number: PHEH2010US03277

PATIENT
  Age: 48 Year
  Sex: Male
  Weight: 60.8 kg

DRUGS (5)
  1. HYDREA [Concomitant]
  2. LORCET-HD [Concomitant]
  3. OXYCONTIN [Concomitant]
  4. EXJADE [Suspect]
     Indication: IRON OVERLOAD
     Dosage: 1250 MG DAILY, ORAL
     Route: 048
     Dates: start: 20080301
  5. FOLIC ACID [Concomitant]

REACTIONS (5)
  - NON-CARDIAC CHEST PAIN [None]
  - PAIN [None]
  - SICKLE CELL ANAEMIA WITH CRISIS [None]
  - COUGH [None]
  - UPPER RESPIRATORY TRACT INFECTION [None]
